FAERS Safety Report 23261255 (Version 2)
Quarter: 2023Q4

REPORT INFORMATION
  Report Type: Spontaneous
  Country: US (occurrence: US)
  Receive Date: 20231205
  Receipt Date: 20231207
  Transmission Date: 20240109
  Serious: Yes (Hospitalization, Other)
  Sender: FDA-Public Use
  Company Number: US-BRISTOL-MYERS SQUIBB COMPANY-2023-171443

PATIENT
  Age: 82 Year
  Sex: Female
  Weight: 52.16 kg

DRUGS (1)
  1. REVLIMID [Suspect]
     Active Substance: LENALIDOMIDE
     Indication: Plasma cell myeloma
     Dosage: DOSE : 15 MG;     FREQ : ^TAKE ONE EVERY DAY FOR 3 WEEKS AND THE 4TH WEEK, NO REVLIMID^
     Route: 048
     Dates: start: 201710

REACTIONS (2)
  - Lymphocytic lymphoma [Unknown]
  - Leukaemia [Unknown]
